FAERS Safety Report 24940109 (Version 1)
Quarter: 2025Q1

REPORT INFORMATION
  Report Type: Spontaneous
  Country: IT (occurrence: IT)
  Receive Date: 20250207
  Receipt Date: 20250207
  Transmission Date: 20250409
  Serious: Yes (Other)
  Sender: CELLTRION
  Company Number: IT-ROCHE-3564088

PATIENT

DRUGS (10)
  1. BEVACIZUMAB [Suspect]
     Active Substance: BEVACIZUMAB
     Indication: Hepatocellular carcinoma
     Route: 042
     Dates: start: 20240304
  2. ATEZOLIZUMAB [Suspect]
     Active Substance: ATEZOLIZUMAB
     Indication: Hepatocellular carcinoma
     Route: 042
     Dates: start: 20240304
  3. TIRAGOLUMAB [Suspect]
     Active Substance: TIRAGOLUMAB
     Indication: Hepatocellular carcinoma
     Route: 042
     Dates: start: 20240304
  4. ROSUVASTATIN [Concomitant]
     Active Substance: ROSUVASTATIN
     Indication: Hypercholesterolaemia
     Route: 048
  5. CARVEDILOL [Concomitant]
     Active Substance: CARVEDILOL
     Indication: Hypertension
     Route: 048
  6. LAMIVUDINE [Concomitant]
     Active Substance: LAMIVUDINE
     Route: 048
     Dates: start: 20240216
  7. RAMIPRIL [Concomitant]
     Active Substance: RAMIPRIL
     Route: 048
     Dates: start: 20240217
  8. AMUKINE MED [Concomitant]
     Dates: start: 20240503, end: 20240524
  9. GENTALYN BETA [Concomitant]
     Indication: Rash
     Dates: start: 20240503, end: 20240524
  10. 2^,4^,5^,7^- TETRABROMOFLUORESCEIN [Concomitant]
     Active Substance: 2^,4^,5^,7^- TETRABROMOFLUORESCEIN
     Indication: Rash
     Route: 061
     Dates: start: 20240524

REACTIONS (2)
  - Hyperthyroidism [Recovered/Resolved]
  - Intentional product use issue [Unknown]

NARRATIVE: CASE EVENT DATE: 20240503
